FAERS Safety Report 7991053-2 (Version None)
Quarter: 2011Q4

REPORT INFORMATION
  Report Type: 
  Country: None (occurrence: None)
  Receive Date: 20111219
  Receipt Date: 20111212
  Transmission Date: 20120403
  Serious: Yes (Hospitalization, Other)
  Sender: FDA-Public Use
  Company Number: DE-UCBSA-045350

PATIENT
  Age: 27 Year
  Sex: Female
  Weight: 51.2 kg

DRUGS (5)
  1. AZITHROMYCIN [Suspect]
     Indication: INFECTION PROPHYLAXIS
     Route: 048
     Dates: start: 20110625, end: 20110704
  2. ECULIZUMAB [Suspect]
     Indication: HAEMOLYTIC URAEMIC SYNDROME
     Dosage: 10 MG/ML
     Route: 042
     Dates: start: 20110617, end: 20110617
  3. RIFAXIMIN [Suspect]
     Indication: CLOSTRIDIUM DIFFICILE COLITIS
     Route: 048
     Dates: start: 20110614, end: 20110620
  4. KEPPRA [Suspect]
     Indication: CONVULSION
     Route: 042
     Dates: start: 20110608, end: 20110620
  5. RAMIPRIL [Suspect]
     Indication: PROTEINURIA
     Route: 048
     Dates: start: 20110615, end: 20110629

REACTIONS (2)
  - COLITIS ISCHAEMIC [None]
  - PANCREATITIS [None]
